FAERS Safety Report 4539954-1 (Version None)
Quarter: 2004Q4

REPORT INFORMATION
  Report Type: 
  Country: None (occurrence: None)
  Receive Date: 20041223
  Receipt Date: 20041216
  Transmission Date: 20050328
  Serious: Yes (Hospitalization)
  Sender: FDA-Public Use
  Company Number: 2004095526

PATIENT
  Age: 56 Year
  Sex: Male
  Weight: 104 kg

DRUGS (4)
  1. LIPITOR [Suspect]
     Indication: CORONARY ARTERY DISEASE
     Dosage: (50 MG)
     Dates: start: 19981201
  2. WARFARIN SODIUM [Concomitant]
  3. FLECAINIDE ACETATE [Concomitant]
  4. DIGOXIN [Concomitant]

REACTIONS (3)
  - GLOBAL AMNESIA [None]
  - HEADACHE [None]
  - MIGRAINE [None]
